FAERS Safety Report 17456526 (Version 1)
Quarter: 2020Q1

REPORT INFORMATION
  Report Type: Spontaneous
  Country: NG (occurrence: NG)
  Receive Date: 20200225
  Receipt Date: 20200225
  Transmission Date: 20200409
  Serious: Yes (Death, Hospitalization, Other)
  Sender: FDA-Public Use
  Company Number: NG-PFIZER INC-2020081403

PATIENT
  Sex: Female

DRUGS (1)
  1. MERONEM [Suspect]
     Active Substance: MEROPENEM
     Dosage: UNK

REACTIONS (2)
  - Treatment failure [Fatal]
  - Pathogen resistance [Unknown]
